FAERS Safety Report 9503264 (Version 1)
Quarter: 2013Q1

REPORT INFORMATION
  Report Type: Spontaneous
  Country: US (occurrence: None)
  Receive Date: 20130225
  Receipt Date: 20130225
  Transmission Date: 20140127
  Serious: Yes (Hospitalization)
  Sender: FDA-Public Use
  Company Number: 368884

PATIENT
  Age: 56 Year
  Sex: Male
  Weight: 92.5 kg

DRUGS (3)
  1. VICTOZA [Suspect]
     Indication: TYPE 2 DIABETES MELLITUS
     Route: 058
     Dates: start: 20110526, end: 20111011
  2. ACTOS (PIOGLITAZONE HYDROCHLORIDE) [Concomitant]
  3. METFORMIN (METFORMIN) [Concomitant]

REACTIONS (1)
  - Pancreatitis [None]
